FAERS Safety Report 21267311 (Version 1)
Quarter: 2022Q3

REPORT INFORMATION
  Report Type: Spontaneous
  Country: DK (occurrence: DK)
  Receive Date: 20220829
  Receipt Date: 20220829
  Transmission Date: 20221026
  Serious: Yes (Hospitalization)
  Sender: FDA-Public Use
  Company Number: None

PATIENT

DRUGS (5)
  1. MINIRIN [Suspect]
     Active Substance: DESMOPRESSIN ACETATE
     Indication: Nocturia
     Dosage: 120 UG, 1 TIME DAILY
     Route: 060
     Dates: start: 20220601, end: 20220726
  2. MINIRIN [Suspect]
     Active Substance: DESMOPRESSIN ACETATE
     Dosage: 60 UG, DAILY
     Route: 060
     Dates: start: 20210201
  3. BRINTELLIX [Concomitant]
     Active Substance: VORTIOXETINE HYDROBROMIDE
     Indication: Depression
     Dates: start: 20190506
  4. SODIUM CHLORIDE [Concomitant]
     Active Substance: SODIUM CHLORIDE
     Indication: Supplementation therapy
     Dosage: DOSE CHANGED TO 500 MG, 1 TIME DAILY APPROXIMATELY 3 WEEKS BEFORE REACTION
     Route: 048
  5. SODIUM CHLORIDE [Concomitant]
     Active Substance: SODIUM CHLORIDE
     Dosage: 750 MG, 2 TIMES DAILY
     Route: 048
     Dates: start: 20170926

REACTIONS (6)
  - Presyncope [Unknown]
  - Hyponatraemia [Recovering/Resolving]
  - Dizziness [Unknown]
  - Vomiting [Unknown]
  - Contraindicated product administered [Recovered/Resolved]
  - Labelled drug-disease interaction medication error [Recovered/Resolved]

NARRATIVE: CASE EVENT DATE: 20210201
